FAERS Safety Report 7652274-1 (Version None)
Quarter: 2011Q3

REPORT INFORMATION
  Report Type: 
  Country: None (occurrence: None)
  Receive Date: 20110722
  Receipt Date: 20101213
  Transmission Date: 20111222
  Serious: Yes (Hospitalization)
  Sender: FDA-Public Use
  Company Number: UTC-003312

PATIENT
  Age: 11 Year
  Sex: Male
  Weight: 74.5 kg

DRUGS (2)
  1. REVATIO [Concomitant]
  2. REMODULIN [Suspect]
     Indication: PULMONARY HYPERTENSION
     Dosage: INTRAVENOUS
     Route: 042

REACTIONS (2)
  - EXERCISE TOLERANCE DECREASED [None]
  - DEVICE RELATED INFECTION [None]
